FAERS Safety Report 6130499-4 (Version None)
Quarter: 2009Q1

REPORT INFORMATION
  Report Type: 
  Country: None (occurrence: None)
  Receive Date: 20090323
  Receipt Date: 20090308
  Transmission Date: 20090719
  Serious: Yes (Disabling)
  Sender: FDA-Public Use
  Company Number: 2007S1006136

PATIENT
  Age: 77 Year
  Sex: Male
  Weight: 99.7913 kg

DRUGS (8)
  1. PHOSPHOSODA FLAVOR NOT SPECIFIED [Suspect]
     Indication: COLONOSCOPY
     Dosage: 90 ML;TOTAL;PO
     Route: 048
     Dates: start: 20070116, end: 20070116
  2. DULCOLAX [Concomitant]
  3. METOPROLOL [Concomitant]
  4. OMEPRAZOLE [Concomitant]
  5. LISINOPRIL [Concomitant]
  6. DOXAZOSIN MESYLATE [Concomitant]
  7. CALCIUM [Concomitant]
  8. VITAMIN B-12 [Concomitant]

REACTIONS (5)
  - DIALYSIS [None]
  - DRUG TOXICITY [None]
  - ECONOMIC PROBLEM [None]
  - NEPHROPATHY [None]
  - RENAL FAILURE CHRONIC [None]
